FAERS Safety Report 6464043-9 (Version None)
Quarter: 2009Q4

REPORT INFORMATION
  Report Type: 
  Country: None (occurrence: None)
  Receive Date: 20091123
  Receipt Date: 20091109
  Transmission Date: 20100525
  Serious: Yes (Hospitalization)
  Sender: FDA-Public Use
  Company Number: 2009AL007205

PATIENT
  Age: 4 Year
  Sex: Female

DRUGS (2)
  1. SULFATRIM AND SULFATRIM PEDIATRIC SUSPENSION (SULFAMETHOXAZOLE/TRIMETH [Suspect]
     Indication: MALARIA
  2. FANSIDAR [Concomitant]

REACTIONS (2)
  - STEVENS-JOHNSON SYNDROME [None]
  - TOXIC EPIDERMAL NECROLYSIS [None]
